FAERS Safety Report 7790036-5 (Version None)
Quarter: 2011Q3

REPORT INFORMATION
  Report Type: 
  Country: None (occurrence: None)
  Receive Date: 20110930
  Receipt Date: 20100810
  Transmission Date: 20111222
  Serious: No
  Sender: FDA-Public Use
  Company Number: US-ASTRAZENECA-2010SE24928

PATIENT
  Age: 72 Year
  Sex: Female
  Weight: 45.4 kg

DRUGS (2)
  1. ARIMIDEX [Suspect]
     Indication: BREAST CANCER
     Route: 048
     Dates: start: 20070101
  2. CRESTOR [Suspect]
     Indication: HYPERCHOLESTEROLAEMIA
     Route: 048
     Dates: start: 20100501

REACTIONS (7)
  - IRRITABILITY [None]
  - ASTHENIA [None]
  - FLATULENCE [None]
  - ABDOMINAL DISTENSION [None]
  - DRY SKIN [None]
  - HAIR DISORDER [None]
  - NAUSEA [None]
